FAERS Safety Report 14806424 (Version 1)
Quarter: 2018Q2

REPORT INFORMATION
  Report Type: Spontaneous
  Country: US (occurrence: US)
  Receive Date: 20180425
  Receipt Date: 20180425
  Transmission Date: 20180711
  Serious: Yes (Hospitalization)
  Sender: FDA-Public Use
  Company Number: PHHY2018US064490

PATIENT
  Age: 35 Year
  Sex: Male

DRUGS (2)
  1. PAROXETINE. [Suspect]
     Active Substance: PAROXETINE
     Indication: DEPRESSION
     Route: 065
  2. HYDROXYZINE [Suspect]
     Active Substance: HYDROXYZINE HYDROCHLORIDE
     Indication: DEPRESSION
     Route: 065

REACTIONS (8)
  - Serotonin syndrome [Recovering/Resolving]
  - Rhabdomyolysis [Recovering/Resolving]
  - Agitation [Recovering/Resolving]
  - Muscle rigidity [Recovering/Resolving]
  - Clonus [Recovered/Resolved]
  - Delirium [Recovering/Resolving]
  - Overdose [Recovering/Resolving]
  - Hyperreflexia [Recovering/Resolving]
